FAERS Safety Report 24200883 (Version 1)
Quarter: 2024Q3

REPORT INFORMATION
  Report Type: Spontaneous
  Country: US (occurrence: US)
  Receive Date: 20240812
  Receipt Date: 20240812
  Transmission Date: 20241016
  Serious: Yes (Death, Other)
  Sender: AMGEN
  Company Number: US-AMGEN-USASP2024159193

PATIENT

DRUGS (6)
  1. PREDNISONE [Suspect]
     Active Substance: PREDNISONE
     Indication: Blastic plasmacytoid dendritic cell neoplasia
     Dosage: UNK
     Route: 065
  2. CYCLOPHOSPHAMIDE [Concomitant]
     Active Substance: CYCLOPHOSPHAMIDE
     Indication: Blastic plasmacytoid dendritic cell neoplasia
     Dosage: UNK
     Route: 065
  3. DOXORUBICIN [Concomitant]
     Active Substance: DOXORUBICIN
     Indication: Blastic plasmacytoid dendritic cell neoplasia
     Dosage: UNK
     Route: 065
  4. VINCRISTINE [Concomitant]
     Active Substance: VINCRISTINE
     Indication: Blastic plasmacytoid dendritic cell neoplasia
     Dosage: UNK
     Route: 065
  5. MITOXANTRONE [Concomitant]
     Active Substance: MITOXANTRONE HYDROCHLORIDE
     Indication: Blastic plasmacytoid dendritic cell neoplasia
     Dosage: UNK
     Route: 065
  6. ETOPOSIDE [Concomitant]
     Active Substance: ETOPOSIDE
     Indication: Blastic plasmacytoid dendritic cell neoplasia
     Dosage: UNK
     Route: 065

REACTIONS (4)
  - Death [Fatal]
  - Blastic plasmacytoid dendritic cell neoplasia [Unknown]
  - Off label use [Unknown]
  - Therapy partial responder [Unknown]
